FAERS Safety Report 15386070 (Version 1)
Quarter: 2018Q3

REPORT INFORMATION
  Report Type: Spontaneous
  Country: US (occurrence: US)
  Receive Date: 20180914
  Receipt Date: 20180914
  Transmission Date: 20181010
  Serious: No
  Sender: FDA-Public Use
  Company Number: US-JNJFOC-20180844194

PATIENT
  Sex: Female
  Weight: 120.2 kg

DRUGS (2)
  1. STELARA [Suspect]
     Active Substance: USTEKINUMAB
     Indication: PSORIASIS
     Route: 058
  2. LISINOPRIL. [Concomitant]
     Active Substance: LISINOPRIL
     Route: 065

REACTIONS (2)
  - Psoriasis [Unknown]
  - Joint swelling [Unknown]
